FAERS Safety Report 9085095 (Version 1)
Quarter: 2013Q1

REPORT INFORMATION
  Report Type: Report from Study
  Country: US (occurrence: US)
  Receive Date: 20130131
  Receipt Date: 20130131
  Transmission Date: 20140127
  Serious: No
  Sender: FDA-Public Use
  Company Number: US-ABBOTT-12P-163-0996223-00

PATIENT
  Age: 12 None
  Sex: Male
  Weight: 40.86 kg

DRUGS (2)
  1. HUMIRA [Suspect]
     Indication: CROHN^S DISEASE
     Dosage: 80 MG
     Dates: start: 20120711, end: 20120711
  2. HUMIRA [Suspect]
     Dosage: 40 MG
     Dates: start: 20120725, end: 20120905

REACTIONS (10)
  - Off label use [Not Recovered/Not Resolved]
  - Crohn^s disease [Recovering/Resolving]
  - Inflammatory marker increased [Recovering/Resolving]
  - Haemoglobin abnormal [Recovering/Resolving]
  - Diarrhoea haemorrhagic [Recovering/Resolving]
  - Diarrhoea haemorrhagic [Recovering/Resolving]
  - Abdominal pain [Recovering/Resolving]
  - Weight decreased [Recovering/Resolving]
  - Injection site pain [Recovered/Resolved]
  - Drug ineffective [Not Recovered/Not Resolved]
